FAERS Safety Report 25682722 (Version 2)
Quarter: 2025Q3

REPORT INFORMATION
  Report Type: Spontaneous
  Country: CN (occurrence: CN)
  Receive Date: 20250814
  Receipt Date: 20250820
  Transmission Date: 20251021
  Serious: Yes (Other)
  Sender: PFIZER
  Company Number: CN-PFIZER INC-PV202500097699

PATIENT
  Age: 56 Year
  Sex: Female
  Weight: 50 kg

DRUGS (1)
  1. TIGECYCLINE [Suspect]
     Active Substance: TIGECYCLINE
     Indication: Abdominal infection
     Dosage: 50 MG, 2X/DAY
     Route: 041
     Dates: start: 20250801, end: 20250805

REACTIONS (3)
  - Jaundice cholestatic [Unknown]
  - Ocular icterus [Unknown]
  - Pruritus [Unknown]

NARRATIVE: CASE EVENT DATE: 20250805
